FAERS Safety Report 6600221-3 (Version None)
Quarter: 2010Q1

REPORT INFORMATION
  Report Type: 
  Country: None (occurrence: None)
  Receive Date: 20100217
  Receipt Date: 20100202
  Transmission Date: 20100710
  Serious: Yes (Other)
  Sender: FDA-Public Use
  Company Number: DSA_42583_2010

PATIENT
  Sex: Male

DRUGS (1)
  1. BUPROPION HCL [Suspect]
     Indication: DRUG USE FOR UNKNOWN INDICATION
     Dosage: 150 MG QD ORAL
     Route: 048
     Dates: start: 20100101

REACTIONS (3)
  - DIZZINESS [None]
  - EPISTAXIS [None]
  - HYPERTENSIVE CRISIS [None]
